FAERS Safety Report 21904678 (Version 1)
Quarter: 2023Q1

REPORT INFORMATION
  Report Type: Spontaneous
  Country: US (occurrence: US)
  Receive Date: 20230124
  Receipt Date: 20230124
  Transmission Date: 20230417
  Serious: Yes (Hospitalization)
  Sender: FDA-Public Use
  Company Number: US-SA-SAC20230124000597

PATIENT
  Sex: Female

DRUGS (19)
  1. DUPIXENT [Suspect]
     Active Substance: DUPILUMAB
     Dosage: 300 MG, QOW
     Route: 058
     Dates: start: 202006, end: 202210
  2. MOUNJARO [Concomitant]
     Active Substance: TIRZEPATIDE
  3. OMEPRAZOLE [Concomitant]
     Active Substance: OMEPRAZOLE
  4. FLUCONAZOLE [Concomitant]
     Active Substance: FLUCONAZOLE
  5. UBRELVY [Concomitant]
     Active Substance: UBROGEPANT
  6. CLOPIDOGREL [Concomitant]
     Active Substance: CLOPIDOGREL BISULFATE
  7. HYDROXYZINE HYDROCHLORIDE [Concomitant]
     Active Substance: HYDROXYZINE HYDROCHLORIDE
  8. ROSUVASTATIN CALCIUM [Concomitant]
     Active Substance: ROSUVASTATIN CALCIUM
  9. PRIMIDONE [Concomitant]
     Active Substance: PRIMIDONE
  10. ALBUTEROL SULFATE [Concomitant]
     Active Substance: ALBUTEROL SULFATE
  11. FLOVENT HFA [Concomitant]
     Active Substance: FLUTICASONE PROPIONATE
  12. DULERA [Concomitant]
     Active Substance: FORMOTEROL FUMARATE DIHYDRATE\MOMETASONE FUROATE
  13. JARDIANCE [Concomitant]
     Active Substance: EMPAGLIFLOZIN
  14. FAMOTIDINE [Concomitant]
     Active Substance: FAMOTIDINE
  15. PROMETHAZINE HYDROCHLORIDE [Concomitant]
     Active Substance: PROMETHAZINE HYDROCHLORIDE
  16. OZEMPIC [Concomitant]
     Active Substance: SEMAGLUTIDE
  17. PREDNISONE [Concomitant]
     Active Substance: PREDNISONE
  18. LAGEVRIO [Concomitant]
     Active Substance: MOLNUPIRAVIR
  19. MODERNA COVID-19 VACCINE [Concomitant]
     Active Substance: ELASOMERAN

REACTIONS (1)
  - COVID-19 [Unknown]
